FAERS Safety Report 14333282 (Version 9)
Quarter: 2025Q3

REPORT INFORMATION
  Report Type: Spontaneous
  Country: EU (occurrence: EU)
  Receive Date: 20171228
  Receipt Date: 20250723
  Transmission Date: 20251020
  Serious: Yes (Other)
  Sender: INCYTE
  Company Number: EU-002147023-PHHY2017GR190078

PATIENT
  Age: 66 Year

DRUGS (9)
  1. RUXOLITINIB [Suspect]
     Active Substance: RUXOLITINIB
     Indication: Chronic lymphocytic leukaemia
     Route: 065
  2. ELTROMBOPAG [Suspect]
     Active Substance: ELTROMBOPAG
     Indication: Chronic lymphocytic leukaemia
     Route: 065
  3. FLUDARABINE PHOSPHATE [Suspect]
     Active Substance: FLUDARABINE PHOSPHATE
     Indication: Chronic lymphocytic leukaemia
     Route: 065
  4. FLUDARABINE PHOSPHATE [Suspect]
     Active Substance: FLUDARABINE PHOSPHATE
     Route: 065
  5. FLUDARABINE PHOSPHATE [Suspect]
     Active Substance: FLUDARABINE PHOSPHATE
     Route: 065
  6. CYCLOPHOSPHAMIDE [Suspect]
     Active Substance: CYCLOPHOSPHAMIDE
     Indication: Chronic lymphocytic leukaemia
     Route: 065
  7. RITUXIMAB [Suspect]
     Active Substance: RITUXIMAB
     Indication: Chronic lymphocytic leukaemia
     Route: 065
  8. PENTOSTATIN [Suspect]
     Active Substance: PENTOSTATIN
     Indication: Chronic lymphocytic leukaemia
     Route: 065
  9. HUMAN IMMUNOGLOBULIN G [Suspect]
     Active Substance: HUMAN IMMUNOGLOBULIN G
     Indication: Product used for unknown indication

REACTIONS (9)
  - Acute myeloid leukaemia [Unknown]
  - Chronic lymphocytic leukaemia [Unknown]
  - Anaemia [Unknown]
  - Neutropenia [Not Recovered/Not Resolved]
  - Lumbar vertebral fracture [Unknown]
  - Pancytopenia [Unknown]
  - Product use in unapproved indication [Unknown]
  - Thrombocytopenia [Not Recovered/Not Resolved]
  - Drug ineffective [Unknown]
